FAERS Safety Report 4821022-2 (Version None)
Quarter: 2005Q4

REPORT INFORMATION
  Report Type: 
  Country: None (occurrence: None)
  Receive Date: 20051103
  Receipt Date: 20051103
  Transmission Date: 20060501
  Serious: Yes (Life-Threatening, Hospitalization)
  Sender: FDA-Public Use
  Company Number: None

PATIENT
  Age: 66 Year
  Sex: Male
  Weight: 83.7 kg

DRUGS (1)
  1. COUMADIN [Suspect]

REACTIONS (2)
  - PALPITATIONS [None]
  - TREMOR [None]
